FAERS Safety Report 10359241 (Version 1)
Quarter: 2014Q3

REPORT INFORMATION
  Report Type: Spontaneous
  Country: US (occurrence: None)
  Receive Date: 20140731
  Receipt Date: 20140731
  Transmission Date: 20150326
  Serious: Yes (Other)
  Sender: FDA-Public Use
  Company Number: None

PATIENT
  Age: 62 Year
  Sex: Female
  Weight: 77.11 kg

DRUGS (1)
  1. INSTAFLEX [Suspect]
     Active Substance: DIETARY SUPPLEMENT
     Indication: OSTEOARTHRITIS
     Dosage: 3 PILLS DAILY?ONCE DAILY?TAKEN BY MOUTH
     Route: 048
     Dates: start: 20140714, end: 20140717

REACTIONS (7)
  - Hypophagia [None]
  - Mouth swelling [None]
  - Mouth ulceration [None]
  - Alopecia [None]
  - Abdominal pain upper [None]
  - Pharyngeal oedema [None]
  - Diarrhoea [None]

NARRATIVE: CASE EVENT DATE: 20140716
